FAERS Safety Report 4685761-9 (Version None)
Quarter: 2005Q2

REPORT INFORMATION
  Report Type: 
  Country: None (occurrence: None)
  Receive Date: 20050608
  Receipt Date: 20050525
  Transmission Date: 20051028
  Serious: Yes (Disabling)
  Sender: FDA-Public Use
  Company Number: 0104-2284

PATIENT
  Age: 71 Year
  Sex: Female
  Weight: 70.3075 kg

DRUGS (8)
  1. ADVICOR [Suspect]
     Indication: BLOOD CHOLESTEROL INCREASED
     Dosage: 1 TABLET(S) QHS PO
     Route: 048
     Dates: start: 20041012, end: 20041129
  2. DIOVAN HCT [Concomitant]
  3. LEXAPRO [Concomitant]
  4. LEVOXYL [Concomitant]
  5. NITROGLYCERIN [Concomitant]
  6. ASPIRIN [Concomitant]
  7. TOPROL-XL [Concomitant]
  8. ISOSORBIDE [Concomitant]

REACTIONS (2)
  - BLINDNESS [None]
  - MACULAR DEGENERATION [None]
